FAERS Safety Report 8373528-X (Version None)
Quarter: 2012Q2

REPORT INFORMATION
  Report Type: 
  Country: None (occurrence: None)
  Receive Date: 20120517
  Receipt Date: 20120413
  Transmission Date: 20120825
  Serious: Yes (Hospitalization, Other)
  Sender: FDA-Public Use
  Company Number: DE-021554

PATIENT
  Age: 78 Year
  Sex: Female

DRUGS (2)
  1. LEUKERAN [Suspect]
     Indication: CHRONIC LYMPHOCYTIC LEUKAEMIA
     Dosage: 10MG/M2 AT DAYS 1-7 EVERY 28 DAYS (10 MG/M2), ORAL;
     Route: 048
     Dates: start: 20100504
  2. DIURETIC [Concomitant]

REACTIONS (1)
  - DYSPNOEA [None]
